FAERS Safety Report 13101621 (Version 2)
Quarter: 2017Q1

REPORT INFORMATION
  Report Type: Spontaneous
  Country: US (occurrence: US)
  Receive Date: 20170110
  Receipt Date: 20170117
  Transmission Date: 20170428
  Serious: No
  Sender: FDA-Public Use
  Company Number: US-ASTRAZENECA-2017SE01877

PATIENT
  Age: 57 Year
  Sex: Female
  Weight: 95.3 kg

DRUGS (3)
  1. TAMOXIFEN [Suspect]
     Active Substance: TAMOXIFEN
     Dosage: DOSE UNKNOWN
     Route: 048
     Dates: end: 20161207
  2. ARIMIDEX [Suspect]
     Active Substance: ANASTROZOLE
     Dosage: DOSE UNKNOWN
     Route: 048
  3. FASLODEX [Suspect]
     Active Substance: FULVESTRANT
     Indication: BREAST CANCER
     Dosage: DOSE UNKNOWN
     Route: 030
     Dates: start: 20161216

REACTIONS (3)
  - Haemorrhage [Unknown]
  - Drug intolerance [Unknown]
  - Vaginal haemorrhage [Unknown]
